FAERS Safety Report 17914915 (Version 1)
Quarter: 2020Q2

REPORT INFORMATION
  Report Type: Spontaneous
  Country: US (occurrence: US)
  Receive Date: 20200618
  Receipt Date: 20200618
  Transmission Date: 20200714
  Serious: Yes (Death, Hospitalization)
  Sender: FDA-Public Use
  Company Number: US-ACELLA PHARMACEUTICALS, LLC-2086091

PATIENT
  Sex: Male
  Weight: 84.09 kg

DRUGS (3)
  1. NP THYROID [Suspect]
     Active Substance: LEVOTHYROXINE\LIOTHYRONINE
     Indication: HYPOTHYROIDISM
     Route: 048
     Dates: start: 20190131, end: 2019
  2. FUROSEMIDE. [Concomitant]
     Active Substance: FUROSEMIDE
     Route: 065
  3. SPIRONOLACTONE. [Concomitant]
     Active Substance: SPIRONOLACTONE
     Route: 065

REACTIONS (7)
  - Dyskinesia [Recovered/Resolved]
  - Sepsis [Fatal]
  - Abdominal pain upper [Unknown]
  - Asthenia [Unknown]
  - Tremor [Recovered/Resolved]
  - Liver disorder [Fatal]
  - Nausea [Unknown]

NARRATIVE: CASE EVENT DATE: 2019
